FAERS Safety Report 8814859 (Version 2)
Quarter: 2012Q4

REPORT INFORMATION
  Report Type: 
  Country: US (occurrence: US)
  Receive Date: 20120928
  Receipt Date: 20121008
  Transmission Date: 20130627
  Serious: Yes (Death)
  Sender: FDA-Public Use
  Company Number: US-GILEAD-2012-0061875

PATIENT
  Sex: Male

DRUGS (13)
  1. LETAIRIS [Suspect]
     Indication: PULMONARY ARTERIAL HYPERTENSION
     Dosage: 10 mg, QD
     Route: 048
     Dates: start: 20120705, end: 20120906
  2. LETAIRIS [Suspect]
     Indication: RIGHT VENTRICULAR DYSFUNCTION
  3. LETAIRIS [Suspect]
     Indication: PULMONARY OEDEMA
  4. VICODIN [Concomitant]
  5. HYDRALAZINE [Concomitant]
  6. IPRATROPIUM BROMIDE [Concomitant]
  7. XOPENEX [Concomitant]
  8. ZOLPIDEM [Concomitant]
  9. TORSEMIDE [Concomitant]
  10. FINASTERIDE [Concomitant]
  11. PRADAXA [Concomitant]
  12. ALLOPURINOL [Concomitant]
  13. ASPIRIN [Concomitant]
     Dosage: 81 mg, UNK

REACTIONS (2)
  - Respiratory failure [Fatal]
  - Cardiac arrest [Fatal]
